FAERS Safety Report 8821270 (Version 2)
Quarter: 2012Q4

REPORT INFORMATION
  Report Type: 
  Country: US (occurrence: US)
  Receive Date: 20121002
  Receipt Date: 20121102
  Transmission Date: 20130627
  Serious: Yes (Life-Threatening, Hospitalization)
  Sender: FDA-Public Use
  Company Number: US-BAYER-2012-100983

PATIENT
  Age: 78 Year
  Sex: Female
  Weight: 73 kg

DRUGS (14)
  1. XARELTO [Suspect]
     Indication: CEREBROVASCULAR ACCIDENT PROPHYLAXIS
     Dosage: 20 mg, QD
     Route: 048
     Dates: start: 2012, end: 20120711
  2. XARELTO [Suspect]
     Indication: ATRIAL FIBRILLATION
  3. ACETYLSALICYLIC ACID({=100 MG) [Suspect]
     Dosage: UNK
  4. LIPITOR [Concomitant]
     Dosage: 10 mg, UNK
     Route: 048
  5. ZETIA [Concomitant]
     Dosage: 10 mg, UNK
  6. PRILOSEC [Concomitant]
     Dosage: UNK
  7. PRILOSEC [Concomitant]
  8. RAMIPRIL [Concomitant]
  9. LEXAPRO [Concomitant]
  10. LUMIGAN [Concomitant]
     Indication: DRUG USE FOR UNKNOWN INDICATION
     Dosage: 1 gtt, UNK
     Route: 047
  11. COMBIGAN [Concomitant]
     Indication: DRUG USE FOR UNKNOWN INDICATION
     Dosage: 1 DF, UNK
     Route: 047
  12. CALCIUM [Concomitant]
     Indication: DRUG USE FOR UNKNOWN INDICATION
  13. MULTIVITAMIN WITH MINERALS [Concomitant]
     Indication: DRUG USE FOR UNKNOWN INDICATION
  14. AMBIEN [Concomitant]
     Indication: DRUG USE FOR UNKNOWN INDICATION

REACTIONS (19)
  - Gastrointestinal haemorrhage [Recovered/Resolved with Sequelae]
  - Renal failure acute [Unknown]
  - Small intestinal obstruction [Recovered/Resolved]
  - Atrial fibrillation [Unknown]
  - Coagulopathy [Recovered/Resolved]
  - Vomiting [Unknown]
  - Pleural effusion [Unknown]
  - Depression [Unknown]
  - Haematocrit decreased [None]
  - Haemoglobin decreased [None]
  - Platelet count increased [None]
  - Small intestinal haemorrhage [None]
  - Respiratory failure [None]
  - International normalised ratio increased [None]
  - Red blood cell count decreased [None]
  - White blood cell count increased [None]
  - Electrolyte imbalance [None]
  - Skin candida [None]
  - Pleural effusion [None]
